FAERS Safety Report 25799836 (Version 2)
Quarter: 2025Q3

REPORT INFORMATION
  Report Type: Report from Study
  Country: US (occurrence: US)
  Receive Date: 20250914
  Receipt Date: 20250920
  Transmission Date: 20251020
  Serious: Yes (Hospitalization, Other)
  Sender: SERVIER
  Company Number: US-SERVIER-S25012190

PATIENT

DRUGS (1)
  1. VORASIDENIB [Suspect]
     Active Substance: VORASIDENIB
     Indication: Brain neoplasm malignant
     Dosage: 40 MG, QD
     Route: 048
     Dates: start: 20250313, end: 20250815

REACTIONS (5)
  - Generalised tonic-clonic seizure [Recovered/Resolved]
  - Brain oedema [Unknown]
  - Hemiparesis [Unknown]
  - Emotional distress [Unknown]
  - White blood cell count increased [Recovered/Resolved]

NARRATIVE: CASE EVENT DATE: 20250801
